FAERS Safety Report 9695357 (Version 1)
Quarter: 2013Q4

REPORT INFORMATION
  Report Type: Spontaneous
  Country: GB (occurrence: GB)
  Receive Date: 20131119
  Receipt Date: 20131119
  Transmission Date: 20140711
  Serious: Yes (Other)
  Sender: FDA-Public Use
  Company Number: GB-VERTEX PHARMACEUTICALS INC-2013-011136

PATIENT
  Sex: 0

DRUGS (5)
  1. INCIVO [Suspect]
     Indication: HEPATITIS C
     Route: 048
     Dates: start: 201204
  2. PEG INTERFERON [Suspect]
     Indication: HEPATITIS C
     Route: 065
     Dates: start: 201204
  3. RIBAVIRIN [Suspect]
     Indication: HEPATITIS C
     Route: 065
     Dates: start: 201204
  4. RIBAVIRIN [Suspect]
     Dosage: 600 MG, UNK
     Route: 065
  5. BOCEPREVIR [Suspect]
     Indication: HEPATITIS C
     Dosage: DOSAGE FORM: UNSPECIFIED
     Route: 065
     Dates: start: 201204

REACTIONS (8)
  - Liver transplant [Unknown]
  - Hepatic function abnormal [Unknown]
  - Hepatocellular carcinoma [Unknown]
  - Anaemia [Unknown]
  - Depressed mood [Unknown]
  - Lethargy [Unknown]
  - Pruritus [Unknown]
  - Rash [Recovered/Resolved]
